FAERS Safety Report 4679924-6 (Version None)
Quarter: 2005Q2

REPORT INFORMATION
  Report Type: 
  Country: None (occurrence: None)
  Receive Date: 20050531
  Receipt Date: 20050516
  Transmission Date: 20051028
  Serious: Yes (Hospitalization, Disabling, Other)
  Sender: FDA-Public Use
  Company Number: 2004117393

PATIENT
  Age: 33 Year
  Sex: Male

DRUGS (6)
  1. NEURONTIN [Suspect]
     Indication: ANXIETY
     Dosage: 900 MG (300 MG, 3 IN 1 D),
     Dates: start: 20010212, end: 20010910
  2. NEURONTIN [Suspect]
     Indication: DEPRESSION
     Dosage: 900 MG (300 MG, 3 IN 1 D),
     Dates: start: 20010212, end: 20010910
  3. NEURONTIN [Suspect]
     Indication: MOOD SWINGS
     Dosage: 900 MG (300 MG, 3 IN 1 D),
     Dates: start: 20010212, end: 20010910
  4. TRAZODONE HCL [Concomitant]
  5. MIRTAZAPINE [Concomitant]
  6. NALTREXONE HCL [Concomitant]

REACTIONS (22)
  - ANGER [None]
  - ANXIETY [None]
  - DEFORMITY [None]
  - DRUG INEFFECTIVE [None]
  - EYE INJURY [None]
  - FACE INJURY [None]
  - FACIAL BONES FRACTURE [None]
  - GUN SHOT WOUND [None]
  - HEAD INJURY [None]
  - ILL-DEFINED DISORDER [None]
  - INSOMNIA [None]
  - INTENTIONAL MISUSE [None]
  - INTENTIONAL SELF-INJURY [None]
  - IRRITABILITY [None]
  - MIGRAINE [None]
  - OVERDOSE [None]
  - PAIN [None]
  - SOFT TISSUE INJURY [None]
  - STRESS [None]
  - SUICIDAL IDEATION [None]
  - SUICIDE ATTEMPT [None]
  - UNEVALUABLE EVENT [None]
